FAERS Safety Report 7001203-2 (Version None)
Quarter: 2010Q3

REPORT INFORMATION
  Report Type: 
  Country: None (occurrence: None)
  Receive Date: 20100920
  Receipt Date: 20100701
  Transmission Date: 20110219
  Serious: Yes (Other)
  Sender: FDA-Public Use
  Company Number: US-ASTRAZENECA-2007UW21429

PATIENT
  Age: 50 Year
  Sex: Female
  Weight: 86.2 kg

DRUGS (5)
  1. SEROQUEL [Suspect]
     Indication: DEPRESSION
     Dosage: STRENGTH-  20 MG, 100MG, 200MG  DOSE-  60MG-600MG DAILY
     Route: 048
     Dates: start: 20040108
  2. SEROQUEL [Suspect]
     Route: 048
     Dates: start: 20050501, end: 20060901
  3. PAXIL [Concomitant]
     Indication: DEPRESSION
     Dosage: STRENGTH-  40MG  DOSE-  80MG-120MG DAILY
  4. TRAZODONE HCL [Concomitant]
     Dosage: 10MG- 100MG AT NIGHT
  5. AMBIEN [Concomitant]
     Dosage: 1-10 MG AT NIGHT, AS REQUIRED

REACTIONS (5)
  - DIABETIC COMA [None]
  - DIABETIC KETOACIDOSIS [None]
  - LIGAMENT RUPTURE [None]
  - OBESITY [None]
  - TYPE 2 DIABETES MELLITUS [None]
